FAERS Safety Report 8576411-X (Version None)
Quarter: 2012Q3

REPORT INFORMATION
  Report Type: 
  Country: None (occurrence: None)
  Receive Date: 20120807
  Receipt Date: 20120731
  Transmission Date: 20120928
  Serious: Yes (Other)
  Sender: FDA-Public Use
  Company Number: CA-ROCHE-1095175

PATIENT
  Sex: Male

DRUGS (6)
  1. ASPIRIN [Concomitant]
  2. TRAMADOL HCL [Concomitant]
  3. ZELBORAF [Suspect]
     Indication: METASTATIC MALIGNANT MELANOMA
     Route: 048
     Dates: start: 20120724, end: 20120729
  4. RAMIPRIL [Concomitant]
  5. SALMON OIL [Concomitant]
  6. TRIDURAL [Concomitant]

REACTIONS (5)
  - NAUSEA [None]
  - BLOOD URINE PRESENT [None]
  - VOMITING [None]
  - KIDNEY INFECTION [None]
  - BACK PAIN [None]
